FAERS Safety Report 4574240-5 (Version None)
Quarter: 2005Q1

REPORT INFORMATION
  Report Type: 
  Country: None (occurrence: None)
  Receive Date: 20050208
  Receipt Date: 20041112
  Transmission Date: 20050727
  Serious: No
  Sender: FDA-Public Use
  Company Number: US-GLAXOSMITHKLINE-A0533767A

PATIENT
  Age: 54 Year
  Sex: Male

DRUGS (2)
  1. PAXIL [Suspect]
     Dosage: 20MG PER DAY
     Route: 048
  2. ITRACONAZOL [Concomitant]

REACTIONS (2)
  - EJACULATION DELAYED [None]
  - WEIGHT INCREASED [None]
